FAERS Safety Report 9222827 (Version 1)
Quarter: 2013Q2

REPORT INFORMATION
  Report Type: Spontaneous
  Country: JP (occurrence: JP)
  Receive Date: 20130410
  Receipt Date: 20130410
  Transmission Date: 20140414
  Serious: Yes (Death)
  Sender: FDA-Public Use
  Company Number: JP-PFIZER INC-2013109361

PATIENT
  Age: 78 Year
  Sex: Male

DRUGS (11)
  1. VORICONAZOLE [Suspect]
     Indication: BRONCHOPULMONARY ASPERGILLOSIS
     Dosage: 400 MG, 1X/DAY
     Dates: start: 2005
  2. VORICONAZOLE [Suspect]
     Indication: PENICILLIOSIS
  3. FLUCONAZOLE [Suspect]
     Indication: PENICILLIOSIS
     Dosage: 400 MG, 1X/DAY
     Dates: start: 2005
  4. FLUCONAZOLE [Suspect]
     Indication: BRONCHOPULMONARY ASPERGILLOSIS
  5. ITRACONAZOLE [Suspect]
     Indication: PENICILLIOSIS
     Dosage: 100 MG, 1X/DAY
     Dates: start: 2005, end: 2005
  6. ITRACONAZOLE [Suspect]
     Indication: BRONCHOPULMONARY ASPERGILLOSIS
     Dosage: 200 MG, 1X/DAY
     Dates: start: 20050725
  7. ITRACONAZOLE [Suspect]
     Dosage: 200 MG, 1X/DAY
     Dates: start: 2005
  8. MICAFUNGIN [Suspect]
     Indication: PENICILLIOSIS
     Dosage: 300 MG, 1X/DAY
     Dates: start: 20050725
  9. MICAFUNGIN [Suspect]
     Indication: BRONCHOPULMONARY ASPERGILLOSIS
  10. AMPHOTERICIN B [Suspect]
     Indication: PENICILLIOSIS
     Dosage: 10 MG, 1X/DAY
     Dates: start: 2005
  11. AMPHOTERICIN B [Suspect]
     Indication: BRONCHOPULMONARY ASPERGILLOSIS

REACTIONS (1)
  - Drug ineffective for unapproved indication [Fatal]
